FAERS Safety Report 9028667 (Version 6)
Quarter: 2013Q1

REPORT INFORMATION
  Report Type: Spontaneous
  Country: GB (occurrence: PT)
  Receive Date: 20130124
  Receipt Date: 20130308
  Transmission Date: 20140127
  Serious: Yes (Death, Hospitalization, Other)
  Sender: FDA-Public Use
  Company Number: PHFR2013GB000772

PATIENT
  Sex: Male

DRUGS (1)
  1. VOLTAREN [Suspect]
     Indication: GOUT
     Dosage: 6 DF, QD
     Route: 048

REACTIONS (9)
  - Death [Fatal]
  - Pulmonary embolism [Fatal]
  - Dyspnoea [Fatal]
  - Deep vein thrombosis [Fatal]
  - Gastric disorder [Unknown]
  - Gastrointestinal haemorrhage [Unknown]
  - Circulatory collapse [Unknown]
  - Overdose [Unknown]
  - Drug dispensing error [Unknown]
